FAERS Safety Report 7291665-8 (Version None)
Quarter: 2011Q1

REPORT INFORMATION
  Report Type: 
  Country: None (occurrence: None)
  Receive Date: 20110202
  Receipt Date: 20110117
  Transmission Date: 20110831
  Serious: Yes (Death, Other)
  Sender: FDA-Public Use
  Company Number: JP-ACCORD-008013

PATIENT
  Age: 62 Year
  Sex: Male

DRUGS (3)
  1. MITOMYCIN [Suspect]
     Indication: ANAL CANCER METASTATIC
  2. CISPLATIN [Suspect]
     Indication: ANAL CANCER METASTATIC
  3. FLUOROURACIL [Suspect]
     Indication: ANAL CANCER METASTATIC

REACTIONS (4)
  - OFF LABEL USE [None]
  - NEOPLASM MALIGNANT [None]
  - ANAL CANCER METASTATIC [None]
  - TOXICITY TO VARIOUS AGENTS [None]
